FAERS Safety Report 24766873 (Version 5)
Quarter: 2025Q2

REPORT INFORMATION
  Report Type: Spontaneous
  Country: US (occurrence: US)
  Receive Date: 20241223
  Receipt Date: 20250528
  Transmission Date: 20250717
  Serious: No
  Sender: SANOFI AVENTIS
  Company Number: US-SA-2024SA376814

PATIENT
  Age: 25 Year
  Sex: Male

DRUGS (2)
  1. LANTUS SOLOSTAR [Suspect]
     Active Substance: INSULIN GLARGINE
     Indication: Type 1 diabetes mellitus
     Dosage: 50 IU, BID (50 UNITS IN THE EVENING AND 50 UNITS IN THE MORNING))
     Route: 058
  2. LANTUS SOLOSTAR [Suspect]
     Active Substance: INSULIN GLARGINE
     Dosage: 65 IU, BID
     Route: 058

REACTIONS (6)
  - Blood glucose decreased [Unknown]
  - Device defective [Unknown]
  - Dizziness [Unknown]
  - Blood glucose fluctuation [Unknown]
  - Product storage error [Unknown]
  - Off label use [Unknown]

NARRATIVE: CASE EVENT DATE: 20250125
